FAERS Safety Report 9235647 (Version 1)
Quarter: 2013Q2

REPORT INFORMATION
  Report Type: Spontaneous
  Country: PL (occurrence: PL)
  Receive Date: 20130417
  Receipt Date: 20130417
  Transmission Date: 20140414
  Serious: Yes (Other)
  Sender: FDA-Public Use
  Company Number: PL-009507513-1304POL006584

PATIENT
  Age: 31 Year
  Sex: Female

DRUGS (16)
  1. STOCRIN ORAL SOLUTION [Suspect]
     Indication: HIV INFECTION
     Dosage: UNK
     Route: 048
     Dates: start: 20121215
  2. ATAZANAVIR [Suspect]
     Indication: HIV INFECTION
     Dosage: UNK
     Dates: start: 20041215
  3. DIDANOSINE [Suspect]
     Indication: HIV INFECTION
     Dosage: UNK
     Dates: start: 19970913
  4. STAVUDINE [Suspect]
     Indication: HIV INFECTION
     Dosage: UNK
     Dates: start: 19970913
  5. ZIDOVUDINE [Suspect]
     Indication: HIV INFECTION
     Dosage: UNK
     Dates: start: 19970412
  6. LAMIVUDINE [Suspect]
     Indication: HIV INFECTION
     Dosage: UNK
     Dates: start: 19970412
  7. CRIXIVAN [Suspect]
     Indication: HIV INFECTION
     Dosage: UNK
     Route: 048
     Dates: start: 19980213, end: 19990303
  8. SAQUINAVIR [Suspect]
     Indication: HIV INFECTION
     Dosage: UNK
     Dates: start: 19990303
  9. ABACAVIR [Suspect]
     Indication: HIV INFECTION
     Dosage: UNK
     Dates: start: 20000617
  10. NEVIRAPINE [Suspect]
     Indication: HIV INFECTION
     Dosage: UNK
     Dates: start: 20000617
  11. TENOFOVIR DISOPROXIL FUMARATE [Suspect]
     Indication: HIV INFECTION
     Dosage: UNK
     Dates: start: 20080415
  12. EMTRICITABINE [Suspect]
     Indication: HIV INFECTION
     Dosage: UNK
     Dates: start: 20060415, end: 20061215
  13. LOPINAVIR [Suspect]
     Indication: HIV INFECTION
     Dosage: UNK
     Dates: start: 20080409
  14. ISENTRESS [Suspect]
     Indication: HIV INFECTION
     Dosage: UNK
     Route: 048
     Dates: start: 20080728
  15. DARUNAVIR [Suspect]
     Indication: HIV INFECTION
     Dosage: UNK
     Dates: start: 20090115
  16. ENFUVIRTIDE [Suspect]
     Indication: HIV INFECTION
     Dosage: UNK
     Dates: start: 20100215, end: 20100714

REACTIONS (13)
  - Drug resistance [Unknown]
  - Pneumonia [Unknown]
  - Hydronephrosis [Unknown]
  - Meningitis viral [Unknown]
  - Cachexia [Unknown]
  - Renal hypoplasia [Unknown]
  - Aphasia [Unknown]
  - Urinary tract infection [Unknown]
  - Upper respiratory tract infection [Unknown]
  - Oral candidiasis [Unknown]
  - Breast abscess [Unknown]
  - Dyslipidaemia [Unknown]
  - Headache [Unknown]
